FAERS Safety Report 8782509 (Version 3)
Quarter: 2012Q4

REPORT INFORMATION
  Report Type: 
  Country: US (occurrence: US)
  Receive Date: 20120913
  Receipt Date: 20121002
  Transmission Date: 20130627
  Serious: No
  Sender: FDA-Public Use
  Company Number: US-VERTEX PHARMACEUTICAL INC.-AE-2012-010068

PATIENT
  Age: 48 Year
  Sex: Female
  Weight: 60 kg

DRUGS (7)
  1. VX-950 [Suspect]
     Indication: HEPATITIS C
     Dosage: 750 mg, tid
     Route: 048
  2. PEGASYS [Concomitant]
     Indication: HEPATITIS C
     Route: 058
  3. RIBAVIRIN [Concomitant]
     Indication: HEPATITIS C
     Route: 048
  4. JANUMET [Concomitant]
     Dosage: UNK
  5. AMLODIPINE [Concomitant]
  6. ALEVE [Concomitant]
  7. MULTI VITAMIN / IRON [Concomitant]

REACTIONS (5)
  - Pain [Unknown]
  - Fatigue [Unknown]
  - Anaemia [Unknown]
  - Dysgeusia [Unknown]
  - Diarrhoea [Unknown]
